FAERS Safety Report 7877095-6 (Version None)
Quarter: 2011Q4

REPORT INFORMATION
  Report Type: 
  Country: None (occurrence: None)
  Receive Date: 20111031
  Receipt Date: 20111005
  Transmission Date: 20120403
  Serious: No
  Sender: FDA-Public Use
  Company Number: US-ABBOTT-11P-163-0861699-00

PATIENT
  Sex: Male
  Weight: 95.34 kg

DRUGS (3)
  1. CREON DELAYED-RELEASE CAPSULES [Suspect]
     Indication: PANCREATIC DISORDER
     Dosage: 2 WITH EACH MEAL AND 1 WITH SNACK
     Route: 048
     Dates: start: 20110801
  2. UNKNOWN [Concomitant]
     Indication: PRODUCT USED FOR UNKNOWN INDICATION
  3. CREON DELAYED-RELEASE CAPSULES [Suspect]
     Indication: MALABSORPTION

REACTIONS (2)
  - NOCTURIA [None]
  - DISEASE RECURRENCE [None]
